FAERS Safety Report 7959188-8 (Version None)
Quarter: 2011Q4

REPORT INFORMATION
  Report Type: 
  Country: None (occurrence: None)
  Receive Date: 20111206
  Receipt Date: 20111130
  Transmission Date: 20120403
  Serious: Yes (Other)
  Sender: FDA-Public Use
  Company Number: US-ABBOTT-11P-163-0858527-00

PATIENT
  Sex: Male
  Weight: 93.07 kg

DRUGS (3)
  1. ACETAMINOPHEN [Concomitant]
     Indication: HEADACHE
     Route: 048
  2. HUMIRA [Suspect]
     Indication: PSORIASIS
     Dates: start: 20101001, end: 20110917
  3. OMEPRAZOLE [Concomitant]
     Indication: GASTROOESOPHAGEAL REFLUX DISEASE
     Route: 048

REACTIONS (5)
  - FATIGUE [None]
  - NAUSEA [None]
  - HAEMATEMESIS [None]
  - ABDOMINAL PAIN [None]
  - HEPATIC ENZYME INCREASED [None]
